FAERS Safety Report 15515390 (Version 1)
Quarter: 2018Q4

REPORT INFORMATION
  Report Type: Spontaneous
  Country: GB (occurrence: GB)
  Receive Date: 20181017
  Receipt Date: 20181017
  Transmission Date: 20190205
  Serious: Yes (Hospitalization)
  Sender: FDA-Public Use
  Company Number: GB-CPL-000706

PATIENT
  Age: 84 Year
  Sex: Male

DRUGS (12)
  1. GLUCOSAMINE [Concomitant]
     Active Substance: GLUCOSAMINE
  2. SERTRALINE [Concomitant]
     Active Substance: SERTRALINE HYDROCHLORIDE
  3. OXYBUTYNIN. [Concomitant]
     Active Substance: OXYBUTYNIN CHLORIDE
  4. FINASTERIDE. [Concomitant]
     Active Substance: FINASTERIDE
  5. BECLOMETASONE [Concomitant]
     Active Substance: BECLOMETHASONE DIPROPIONATE
     Route: 045
  6. DONEPEZIL. [Suspect]
     Active Substance: DONEPEZIL
     Indication: PRODUCT USED FOR UNKNOWN INDICATION
     Route: 048
     Dates: end: 20180913
  7. ACETYLSALICYLIC ACID [Concomitant]
     Active Substance: ASPIRIN
  8. SIMVASTATIN. [Concomitant]
     Active Substance: SIMVASTATIN
  9. BENDROFLUMETHIAZIDE [Suspect]
     Active Substance: BENDROFLUMETHIAZIDE
     Indication: PRODUCT USED FOR UNKNOWN INDICATION
     Dosage: MORNING
     Route: 048
     Dates: end: 20180913
  10. PARACETAMOL [Concomitant]
     Active Substance: ACETAMINOPHEN
  11. PERINDOPRIL/PERINDOPRIL ERBUMINE [Concomitant]
  12. FELODIPINE. [Concomitant]
     Active Substance: FELODIPINE

REACTIONS (5)
  - Dizziness [Unknown]
  - Daydreaming [Recovered/Resolved]
  - Orthostatic hypotension [Unknown]
  - Atrioventricular block first degree [Unknown]
  - Syncope [Recovering/Resolving]

NARRATIVE: CASE EVENT DATE: 20180913
